FAERS Safety Report 24249329 (Version 1)
Quarter: 2024Q3

REPORT INFORMATION
  Report Type: Spontaneous
  Country: CA (occurrence: CA)
  Receive Date: 20240826
  Receipt Date: 20240826
  Transmission Date: 20241017
  Serious: Yes (Death, Other)
  Sender: BAXTER
  Company Number: CA-BAXTER-2024BAX023410

PATIENT
  Age: 39 Year
  Sex: Male
  Weight: 56 kg

DRUGS (1)
  1. PROPOFOL [Suspect]
     Active Substance: PROPOFOL
     Dosage: DOSAGE FORM: EMULSION, THERAPY DURATION: 5.0 DAYS, (PROPOFOL INJECTION), UNSPECIFIED DOSE AND FREQUE
     Route: 042

REACTIONS (6)
  - Acute kidney injury [Fatal]
  - Hypertriglyceridaemia [Fatal]
  - Metabolic acidosis [Fatal]
  - Propofol infusion syndrome [Fatal]
  - Rhabdomyolysis [Fatal]
  - Ventricular tachycardia [Fatal]
